FAERS Safety Report 7225019-7 (Version None)
Quarter: 2011Q1

REPORT INFORMATION
  Report Type: 
  Country: None (occurrence: None)
  Receive Date: 20110107
  Receipt Date: 20110107
  Transmission Date: 20110831
  Serious: Yes (Other)
  Sender: FDA-Public Use
  Company Number: None

PATIENT
  Age: 25 Year
  Sex: Female
  Weight: 72.5755 kg

DRUGS (1)
  1. EFFEXOR XR [Suspect]
     Dosage: 150 MG 1 ONCE A DAY PO
     Route: 048
     Dates: start: 20050701, end: 20101228

REACTIONS (13)
  - MYALGIA [None]
  - SLEEP DISORDER [None]
  - INSOMNIA [None]
  - PAIN IN JAW [None]
  - CRYING [None]
  - ARTHRALGIA [None]
  - FATIGUE [None]
  - FLATULENCE [None]
  - WITHDRAWAL SYNDROME [None]
  - DIARRHOEA [None]
  - ABDOMINAL DISTENSION [None]
  - HEADACHE [None]
  - NAUSEA [None]
